FAERS Safety Report 9607031 (Version 2)
Quarter: 2013Q4

REPORT INFORMATION
  Report Type: Spontaneous
  Country: US (occurrence: US)
  Receive Date: 20131009
  Receipt Date: 20131025
  Transmission Date: 20140711
  Serious: Yes (Other)
  Sender: FDA-Public Use
  Company Number: US-MERCK-1310USA003321

PATIENT
  Sex: Male

DRUGS (3)
  1. JANUVIA [Suspect]
     Route: 048
  2. ANTINEOPLASTIC (UNSPECIFIED) [Suspect]
     Indication: NEOPLASM MALIGNANT
  3. METFORMIN [Concomitant]

REACTIONS (2)
  - Neoplasm malignant [Unknown]
  - Pancreatitis [Unknown]
